FAERS Safety Report 4616393-6 (Version None)
Quarter: 2005Q1

REPORT INFORMATION
  Report Type: 
  Country: None (occurrence: None)
  Receive Date: 20050321
  Receipt Date: 20050304
  Transmission Date: 20050727
  Serious: Yes (Other)
  Sender: FDA-Public Use
  Company Number: 2005VX000214

PATIENT
  Age: 54 Year
  Sex: Male

DRUGS (2)
  1. EFUDEX [Suspect]
     Indication: ACTINIC KERATOSIS
     Dosage: TOPICAL
     Route: 061
     Dates: start: 20050301, end: 20050303
  2. HIGH BLOOD PRESSURE MEDICATION NOS [Concomitant]

REACTIONS (7)
  - ARTHROPOD BITE [None]
  - DIZZINESS [None]
  - NAUSEA [None]
  - OEDEMA [None]
  - PAIN [None]
  - PRURITUS GENERALISED [None]
  - URTICARIA [None]
